FAERS Safety Report 10162620 (Version 2)
Quarter: 2014Q2

REPORT INFORMATION
  Report Type: Spontaneous
  Country: IT (occurrence: IT)
  Receive Date: 20140509
  Receipt Date: 20140529
  Transmission Date: 20141212
  Serious: Yes (Congenital Anomaly)
  Sender: FDA-Public Use
  Company Number: IT-ABBVIE-14P-083-1235179-00

PATIENT
  Sex: 0

DRUGS (4)
  1. VALPROIC ACID [Suspect]
     Indication: MATERNAL EXPOSURE TIMING UNSPECIFIED
     Route: 064
  2. PHENOBARBITAL [Suspect]
     Indication: MATERNAL EXPOSURE TIMING UNSPECIFIED
     Route: 064
  3. LAMOTRIGINE [Suspect]
     Indication: MATERNAL EXPOSURE TIMING UNSPECIFIED
     Route: 064
  4. CLOBAZAM [Suspect]
     Indication: MATERNAL EXPOSURE TIMING UNSPECIFIED
     Route: 064

REACTIONS (3)
  - Hypertelorism of orbit [Unknown]
  - Ovarian germ cell teratoma benign [Unknown]
  - Foetal exposure during pregnancy [Unknown]
